FAERS Safety Report 18318489 (Version 3)
Quarter: 2020Q4

REPORT INFORMATION
  Report Type: Spontaneous
  Country: AR (occurrence: AR)
  Receive Date: 20200928
  Receipt Date: 20201005
  Transmission Date: 20210113
  Serious: Yes (Other)
  Sender: FDA-Public Use
  Company Number: AR-MYLANLABS-2020M1081740

PATIENT
  Age: 13 Year
  Sex: Female

DRUGS (2)
  1. LAPENAX [Suspect]
     Active Substance: CLOZAPINE
     Indication: DEVELOPMENTAL DELAY
     Dosage: UNK
     Dates: start: 20190101, end: 20200922
  2. LAPENAX [Suspect]
     Active Substance: CLOZAPINE
     Indication: BEHAVIOUR DISORDER

REACTIONS (8)
  - Haemoglobin decreased [Recovering/Resolving]
  - Red blood cell count decreased [Not Recovered/Not Resolved]
  - Leukopenia [Recovered/Resolved]
  - Neutropenia [Recovered/Resolved]
  - Off label use [Unknown]
  - Eosinophil count decreased [Unknown]
  - Haematocrit decreased [Not Recovered/Not Resolved]
  - Lymphocyte count increased [Unknown]

NARRATIVE: CASE EVENT DATE: 20190101
